FAERS Safety Report 8524287-9 (Version None)
Quarter: 2012Q3

REPORT INFORMATION
  Report Type: 
  Country: None (occurrence: None)
  Receive Date: 20120716
  Receipt Date: 20120716
  Transmission Date: 20120928
  Serious: Yes (Other)
  Sender: FDA-Public Use
  Company Number: None

PATIENT
  Sex: Female

DRUGS (1)
  1. OPANA ER [Suspect]
     Indication: BACK PAIN
     Dosage: 10 MG, ONCE EVERY 12 HOUR

REACTIONS (5)
  - BLISTER [None]
  - DYSURIA [None]
  - RASH [None]
  - PRURITUS [None]
  - EXPOSURE TO TOXIC AGENT [None]
